FAERS Safety Report 8840252 (Version 1)
Quarter: 2012Q4

REPORT INFORMATION
  Report Type: 
  Country: GB (occurrence: GB)
  Receive Date: 20121015
  Receipt Date: 20121015
  Transmission Date: 20130627
  Serious: Yes (Disabling)
  Sender: FDA-Public Use
  Company Number: GB-GLAXOSMITHKLINE-B0836146A

PATIENT
  Age: 17 Year
  Sex: Male
  Weight: 68.4 kg

DRUGS (2)
  1. MALARONE [Suspect]
     Indication: MALARIA PROPHYLAXIS
     Dosage: 1IUAX Per day
     Route: 048
     Dates: start: 20120815, end: 20120831
  2. INSULIN [Concomitant]

REACTIONS (1)
  - Blood glucose increased [Recovered/Resolved]
